FAERS Safety Report 25838872 (Version 1)
Quarter: 2025Q3

REPORT INFORMATION
  Report Type: Spontaneous
  Country: CN (occurrence: CN)
  Receive Date: 20250924
  Receipt Date: 20250924
  Transmission Date: 20251021
  Serious: Yes (Other)
  Sender: JOHNSON AND JOHNSON
  Company Number: CN-JNJFOC-20250931299

PATIENT
  Age: 30 Year
  Sex: Male

DRUGS (4)
  1. INVEGA SUSTENNA [Suspect]
     Active Substance: PALIPERIDONE PALMITATE
     Indication: Psychotic symptom
     Route: 030
     Dates: start: 20250722, end: 20250918
  2. INVEGA SUSTENNA [Suspect]
     Active Substance: PALIPERIDONE PALMITATE
  3. INVEGA SUSTENNA [Suspect]
     Active Substance: PALIPERIDONE PALMITATE
  4. CLOZAPINE [Suspect]
     Active Substance: CLOZAPINE
     Indication: Psychotic symptom
     Route: 048
     Dates: start: 20250722, end: 20250918

REACTIONS (1)
  - Obesity [Not Recovered/Not Resolved]

NARRATIVE: CASE EVENT DATE: 20250904
